FAERS Safety Report 4954989-2 (Version None)
Quarter: 2006Q1

REPORT INFORMATION
  Report Type: 
  Country: None (occurrence: None)
  Receive Date: 20060322
  Receipt Date: 20060308
  Transmission Date: 20060701
  Serious: Yes (Other)
  Sender: FDA-Public Use
  Company Number: 2006033937

PATIENT
  Sex: Male
  Weight: 98.4306 kg

DRUGS (2)
  1. VIAGRA [Suspect]
     Indication: ERECTILE DYSFUNCTION
     Dosage: 25 MG (25 MG, AS NECESSARY)
  2. ACETYLSALICYLIC ACID SRT [Concomitant]

REACTIONS (5)
  - ILL-DEFINED DISORDER [None]
  - MEMORY IMPAIRMENT [None]
  - MENTAL DISORDER [None]
  - PENIS DEVIATION [None]
  - WEIGHT INCREASED [None]
